FAERS Safety Report 16249061 (Version 1)
Quarter: 2019Q2

REPORT INFORMATION
  Report Type: Report from Study
  Country: None (occurrence: GB)
  Receive Date: 20190429
  Receipt Date: 20190429
  Transmission Date: 20190711
  Serious: Yes (Death)
  Sender: FDA-Public Use
  Company Number: GB-ABBVIE-19K-167-2762580-00

PATIENT
  Age: 49 Year
  Sex: Male
  Weight: 109 kg

DRUGS (1)
  1. HUMIRA [Suspect]
     Active Substance: ADALIMUMAB
     Indication: PSORIASIS
     Route: 058
     Dates: start: 20111102

REACTIONS (2)
  - Arteriosclerosis coronary artery [Fatal]
  - Coronary artery thrombosis [Fatal]

NARRATIVE: CASE EVENT DATE: 20190312
